FAERS Safety Report 16439074 (Version 1)
Quarter: 2019Q2

REPORT INFORMATION
  Report Type: Spontaneous
  Country: US (occurrence: US)
  Receive Date: 20190507
  Receipt Date: 20190507
  Transmission Date: 20190711
  Serious: Yes (Hospitalization)
  Sender: FDA-Public Use
  Company Number: None

PATIENT
  Age: 61 Year
  Sex: Male
  Weight: 116.1 kg

DRUGS (2)
  1. IPILIMUMAB [Suspect]
     Active Substance: IPILIMUMAB
     Indication: THYROID CANCER
     Dosage: ?          OTHER FREQUENCY:Q6W;?
     Route: 042
     Dates: start: 20181015
  2. NIVOLUMAB [Suspect]
     Active Substance: NIVOLUMAB
     Indication: THYROID CANCER
     Route: 042
     Dates: start: 20181029

REACTIONS (2)
  - Hypophysitis [None]
  - Adrenal insufficiency [None]

NARRATIVE: CASE EVENT DATE: 20190506
